FAERS Safety Report 25416842 (Version 1)
Quarter: 2025Q2

REPORT INFORMATION
  Report Type: Spontaneous
  Country: IN (occurrence: IN)
  Receive Date: 20250610
  Receipt Date: 20250610
  Transmission Date: 20250717
  Serious: Yes (Death, Other)
  Sender: AMGEN
  Company Number: IN-AMGEN-INDSP2025111197

PATIENT
  Age: 8 Year
  Sex: Male

DRUGS (4)
  1. FILGRASTIM [Suspect]
     Active Substance: FILGRASTIM
     Indication: Acute myeloid leukaemia refractory
     Dosage: 0.5 MICROGRAM/KILOGRAM, QD, FROM DAYS 1 TO 7
     Route: 058
  2. FLUDARABINE [Suspect]
     Active Substance: FLUDARABINE PHOSPHATE
     Indication: Acute myeloid leukaemia refractory
     Dosage: 30 MILLIGRAM/SQ. METER, QD, DAILY ON DAYS 2 TO 6 OVER 4 HOURS
     Route: 040
  3. CYTARABINE [Suspect]
     Active Substance: CYTARABINE
     Indication: Acute myeloid leukaemia refractory
     Route: 040
  4. BORTEZOMIB [Suspect]
     Active Substance: BORTEZOMIB
     Indication: Acute myeloid leukaemia refractory
     Route: 040

REACTIONS (2)
  - Death [Fatal]
  - Pancytopenia [Unknown]
